FAERS Safety Report 13833829 (Version 1)
Quarter: 2017Q3

REPORT INFORMATION
  Report Type: Spontaneous
  Country: BR (occurrence: BR)
  Receive Date: 20170804
  Receipt Date: 20170804
  Transmission Date: 20171127
  Serious: Yes (Other)
  Sender: FDA-Public Use
  Company Number: BR-VALIDUS PHARMACEUTICALS LLC-BR-2017VAL001165

PATIENT

DRUGS (1)
  1. PARLODEL [Suspect]
     Active Substance: BROMOCRIPTINE MESYLATE
     Indication: HORMONE LEVEL ABNORMAL
     Dosage: 1 DF, QD
     Route: 048

REACTIONS (1)
  - Tonsillitis [Not Recovered/Not Resolved]
